FAERS Safety Report 12412254 (Version 1)
Quarter: 2016Q2

REPORT INFORMATION
  Report Type: Spontaneous
  Country: US (occurrence: US)
  Receive Date: 20160527
  Receipt Date: 20160527
  Transmission Date: 20160815
  Serious: Yes (Other)
  Sender: FDA-Public Use
  Company Number: US-MALLINCKRODT-T201602124

PATIENT
  Sex: Male
  Weight: 72 kg

DRUGS (1)
  1. SODIUM IODIDE I 131 [Suspect]
     Active Substance: SODIUM IODIDE I-131
     Indication: BASEDOW^S DISEASE
     Dosage: 65, SINGLE
     Route: 065
     Dates: start: 2012, end: 2012

REACTIONS (1)
  - Parotitis [Not Recovered/Not Resolved]
